FAERS Safety Report 6656515-9 (Version None)
Quarter: 2010Q1

REPORT INFORMATION
  Report Type: 
  Country: None (occurrence: None)
  Receive Date: 20100329
  Receipt Date: 20100318
  Transmission Date: 20100710
  Serious: Yes (Other)
  Sender: FDA-Public Use
  Company Number: JP-PFIZER INC-2009314759

PATIENT
  Age: 78 Year
  Sex: Female

DRUGS (5)
  1. CELECOX [Suspect]
     Indication: RHEUMATOID ARTHRITIS
     Dosage: 100 MG, 2X/DAY
     Route: 048
     Dates: start: 20091209, end: 20091212
  2. AMLODIPINE [Concomitant]
  3. MICARDIS [Concomitant]
  4. CRESTOR [Concomitant]
  5. ASPIRIN [Concomitant]

REACTIONS (1)
  - DRUG ERUPTION [None]
